FAERS Safety Report 5078398-3 (Version None)
Quarter: 2006Q3

REPORT INFORMATION
  Report Type: 
  Country: None (occurrence: None)
  Receive Date: 20060811
  Receipt Date: 20060803
  Transmission Date: 20061208
  Serious: Yes (Life-Threatening)
  Sender: FDA-Public Use
  Company Number: GB-ABBOTT-06P-167-0339606-00

PATIENT
  Age: 26 Year
  Sex: Female

DRUGS (2)
  1. ATRACURIUM BESYLATE(PRESERVATIVE-FREE) [Suspect]
     Indication: DRUG USE FOR UNKNOWN INDICATION
     Route: 042
     Dates: start: 20060516
  2. FENTANYL [Suspect]
     Indication: DRUG USE FOR UNKNOWN INDICATION
     Route: 042
     Dates: start: 20060616

REACTIONS (3)
  - BLOOD PRESSURE DECREASED [None]
  - BRONCHOSPASM [None]
  - SWELLING FACE [None]
